FAERS Safety Report 4607956-2 (Version None)
Quarter: 2005Q2

REPORT INFORMATION
  Report Type: 
  Country: None (occurrence: None)
  Receive Date: 20050303
  Receipt Date: 20041208
  Transmission Date: 20051028
  Serious: No
  Sender: FDA-Public Use
  Company Number: 210992

PATIENT
  Age: 36 Year
  Sex: Female
  Weight: 59 kg

DRUGS (12)
  1. XOLAIR [Suspect]
     Indication: ASTHMA
     Dosage: 150 MG, Q4W, SUBCUTANEOUS
     Route: 058
     Dates: start: 20041013, end: 20041206
  2. ALLEGRA [Concomitant]
  3. BENADRYL [Concomitant]
  4. XOPENEX [Concomitant]
  5. PULMICORT [Concomitant]
  6. SINGULAIR [Concomitant]
  7. REGLAN [Concomitant]
  8. NASACORT [Concomitant]
  9. ZANTAC [Concomitant]
  10. PROVENTIL (ALBUTEROL SULFATE, ALBUTEROL) [Concomitant]
  11. PREVACID [Concomitant]
  12. PREDNISONE [Concomitant]

REACTIONS (1)
  - URTICARIA [None]
